FAERS Safety Report 4899390-5 (Version None)
Quarter: 2006Q1

REPORT INFORMATION
  Report Type: 
  Country: None (occurrence: None)
  Receive Date: 20060106
  Receipt Date: 20050725
  Transmission Date: 20060701
  Serious: No
  Sender: FDA-Public Use
  Company Number: 200511297BWH

PATIENT
  Age: 61 Year
  Sex: Male

DRUGS (7)
  1. LEVITRA [Suspect]
     Dosage: 20 MG, TOTAL DAILY, ORAL
     Route: 048
     Dates: start: 20050625
  2. CIPRO [Concomitant]
  3. AVALIDE [Concomitant]
  4. ASPIRIN [Concomitant]
  5. METFORMIN [Concomitant]
  6. LIPITOR [Concomitant]
  7. CARDIZEM LA [Concomitant]

REACTIONS (1)
  - DRUG INEFFECTIVE [None]
